FAERS Safety Report 8479153-4 (Version None)
Quarter: 2012Q2

REPORT INFORMATION
  Report Type: 
  Country: None (occurrence: None)
  Receive Date: 20120629
  Receipt Date: 20120618
  Transmission Date: 20120825
  Serious: Yes (Life-Threatening, Hospitalization)
  Sender: FDA-Public Use
  Company Number: JP-AMGEN-JPNCT2012036967

PATIENT
  Age: 50 Year
  Sex: Female
  Weight: 69 kg

DRUGS (10)
  1. LANSOPRAZOLE [Concomitant]
     Indication: PROPHYLAXIS
     Route: 048
     Dates: start: 20120321
  2. ALENDRONATE SODIUM [Concomitant]
     Indication: IDIOPATHIC THROMBOCYTOPENIC PURPURA
     Dosage: 35 MG, QD
     Route: 048
     Dates: start: 20120321
  3. ALLEGRA [Concomitant]
     Indication: RHINITIS ALLERGIC
     Dosage: 60 MG, UNK
     Route: 048
     Dates: start: 20120321, end: 20120509
  4. ROMIPLOSTIM - KHK [Suspect]
     Indication: IDIOPATHIC THROMBOCYTOPENIC PURPURA
     Dosage: 3.57 MUG/KG, QWK
     Route: 058
     Dates: start: 20110920, end: 20120530
  5. MUCOSTA [Concomitant]
     Indication: PROPHYLAXIS
     Dosage: 100 UNK, UNK
     Route: 048
     Dates: start: 20120321
  6. ROZEREM [Concomitant]
     Indication: INSOMNIA
     Route: 048
     Dates: start: 20120516
  7. LENDORMIN [Concomitant]
     Indication: INSOMNIA
  8. PURSENNID [Concomitant]
     Dosage: UNK
  9. PREDNISOLONE [Suspect]
     Indication: IDIOPATHIC THROMBOCYTOPENIC PURPURA
     Dosage: 11 MG, UNK
     Route: 048
     Dates: start: 20110827
  10. ACETAMINOPHEN [Concomitant]
     Dosage: UNK

REACTIONS (5)
  - ACUTE MYOCARDIAL INFARCTION [None]
  - HEADACHE [None]
  - RHINITIS ALLERGIC [None]
  - NEUTROPHIL COUNT INCREASED [None]
  - INSOMNIA [None]
